FAERS Safety Report 5188705-9 (Version None)
Quarter: 2006Q4

REPORT INFORMATION
  Report Type: 
  Country: None (occurrence: None)
  Receive Date: 20061214
  Receipt Date: 20061203
  Transmission Date: 20070319
  Serious: Yes (Other)
  Sender: FDA-Public Use
  Company Number: 2006149762

PATIENT
  Age: 70 Year
  Sex: Female
  Weight: 51.7101 kg

DRUGS (3)
  1. CHANTIX [Suspect]
     Indication: SMOKING CESSATION THERAPY
     Dosage: 2 MG (1 MG, 2 IN 1 D), ORAL
     Route: 048
     Dates: start: 20061101, end: 20061101
  2. LOPERAMIDE HCL [Suspect]
     Indication: DIARRHOEA
     Dates: start: 20061101
  3. DONNATAL [Suspect]
     Indication: DIARRHOEA
     Dates: start: 20061101

REACTIONS (7)
  - BLOODY DISCHARGE [None]
  - CONSTIPATION [None]
  - DIARRHOEA [None]
  - FLATULENCE [None]
  - INFECTION [None]
  - MUSCLE SPASMS [None]
  - PAIN [None]
